FAERS Safety Report 6401543-1 (Version None)
Quarter: 2009Q4

REPORT INFORMATION
  Report Type: 
  Country: None (occurrence: None)
  Receive Date: 20091013
  Receipt Date: 20091013
  Transmission Date: 20100525
  Serious: Yes (Hospitalization)
  Sender: FDA-Public Use
  Company Number: None

PATIENT
  Sex: Male
  Weight: 81.9 kg

DRUGS (12)
  1. REVLIMID [Suspect]
     Indication: LYMPHOMA
     Dosage: 20MG PO DAYS 1-21
     Route: 048
     Dates: start: 20090924, end: 20091010
  2. CYCLOPHOSPHAMIDE [Suspect]
     Dosage: 500MG PO DAYS 1, 8, 15
     Route: 048
     Dates: start: 20090924
  3. CYCLOPHOSPHAMIDE [Suspect]
     Dosage: 500MG PO DAYS 1, 8, 15
     Route: 048
     Dates: start: 20091001
  4. CYCLOPHOSPHAMIDE [Suspect]
     Dosage: 500MG PO DAYS 1, 8, 15
     Route: 048
     Dates: start: 20091008
  5. DEXAMETHASONE [Concomitant]
  6. HYDROCHLOROTHIAZIDE [Concomitant]
  7. SINGULAIR [Concomitant]
  8. ZESTRIL [Concomitant]
  9. ALBUTEROL [Concomitant]
  10. ADVAIR DISKUS 100/50 [Concomitant]
  11. LOPRESSOR [Concomitant]
  12. OMEPRAZOLE [Concomitant]

REACTIONS (4)
  - DEHYDRATION [None]
  - HYPOTENSION [None]
  - INFECTION [None]
  - PNEUMONIA [None]
